FAERS Safety Report 10838449 (Version 2)
Quarter: 2016Q1

REPORT INFORMATION
  Report Type: Report from Study
  Country: US (occurrence: US)
  Receive Date: 20150219
  Receipt Date: 20160125
  Transmission Date: 20160525
  Serious: No
  Sender: FDA-Public Use
  Company Number: US-ABBVIE-14P-163-1229802-00

PATIENT
  Sex: Male
  Weight: 118.04 kg

DRUGS (4)
  1. HUMIRA [Suspect]
     Active Substance: ADALIMUMAB
     Indication: PITYRIASIS RUBRA PILARIS
     Route: 058
     Dates: start: 200911
  2. HUMIRA [Suspect]
     Active Substance: ADALIMUMAB
     Indication: PITYRIASIS RUBRA PILARIS
     Route: 058
     Dates: start: 201501
  3. LOSARTAN. [Concomitant]
     Active Substance: LOSARTAN
     Indication: HYPERTENSION
  4. HUMIRA [Suspect]
     Active Substance: ADALIMUMAB
     Route: 058
     Dates: end: 201501

REACTIONS (12)
  - Rash pruritic [Recovered/Resolved]
  - Skin discolouration [Not Recovered/Not Resolved]
  - Rash maculo-papular [Unknown]
  - Overweight [Recovering/Resolving]
  - Glucose tolerance impaired [Not Recovered/Not Resolved]
  - Rash maculo-papular [Recovered/Resolved]
  - Pruritus [Not Recovered/Not Resolved]
  - Blood glucose increased [Recovered/Resolved]
  - Psoriasis [Unknown]
  - Rash pruritic [Unknown]
  - Skin exfoliation [Not Recovered/Not Resolved]
  - Erythema [Not Recovered/Not Resolved]

NARRATIVE: CASE EVENT DATE: 2014
